FAERS Safety Report 11436935 (Version 1)
Quarter: 2015Q3

REPORT INFORMATION
  Report Type: Spontaneous
  Country: US (occurrence: US)
  Receive Date: 20150831
  Receipt Date: 20150831
  Transmission Date: 20151125
  Serious: No
  Sender: FDA-Public Use
  Company Number: US-PFIZER INC-2015285563

PATIENT
  Age: 70 Year
  Sex: Female

DRUGS (6)
  1. CEPHALEXIN. [Suspect]
     Active Substance: CEPHALEXIN
  2. ERYTHROMYCIN. [Suspect]
     Active Substance: ERYTHROMYCIN
  3. CODEINE [Suspect]
     Active Substance: CODEINE
  4. KENALOG [Suspect]
     Active Substance: TRIAMCINOLONE ACETONIDE
  5. PRAVASTATIN [Suspect]
     Active Substance: PRAVASTATIN\PRAVASTATIN SODIUM
  6. DAYPRO [Suspect]
     Active Substance: OXAPROZIN

REACTIONS (1)
  - Drug hypersensitivity [Unknown]
